FAERS Safety Report 14553131 (Version 1)
Quarter: 2018Q1

REPORT INFORMATION
  Report Type: Spontaneous
  Country: US (occurrence: US)
  Receive Date: 20180216
  Receipt Date: 20180216
  Transmission Date: 20180509
  Serious: No
  Sender: FDA-Public Use
  Company Number: None

PATIENT
  Age: 78 Year
  Sex: Female
  Weight: 85.28 kg

DRUGS (1)
  1. EYLEA [Suspect]
     Active Substance: AFLIBERCEPT
     Indication: CHOROIDAL NEOVASCULARISATION
     Dosage: 2MG/0.05ML EVERY 5-6 WEEKS INTRAVITREAL INJECTION
     Dates: start: 20180215

REACTIONS (3)
  - Visual impairment [None]
  - Eye pain [None]
  - Inflammation [None]

NARRATIVE: CASE EVENT DATE: 20180215
